FAERS Safety Report 12606253 (Version 1)
Quarter: 2016Q3

REPORT INFORMATION
  Report Type: Spontaneous
  Country: US (occurrence: None)
  Receive Date: 20160728
  Receipt Date: 20160728
  Transmission Date: 20161109
  Serious: Yes (Other)
  Sender: FDA-Public Use
  Company Number: None

PATIENT
  Age: 70 Year
  Sex: Female
  Weight: 99.79 kg

DRUGS (17)
  1. NOVOLOG [Concomitant]
     Active Substance: INSULIN ASPART
  2. VERAPAMIL [Concomitant]
     Active Substance: VERAPAMIL HYDROCHLORIDE
  3. BABY ASPERIN [Concomitant]
  4. ATORVASTIN [Concomitant]
     Active Substance: ATORVASTATIN
  5. LEVIMER [Concomitant]
  6. LOSARTAN. [Concomitant]
     Active Substance: LOSARTAN
  7. GENERIC ALLERGY TABS [Concomitant]
  8. JANUVIA [Concomitant]
     Active Substance: SITAGLIPTIN PHOSPHATE
  9. GENERIC NEURONTIN [Concomitant]
  10. LEVOTHYXIN [Concomitant]
  11. FISH OIL [Concomitant]
     Active Substance: FISH OIL
  12. MUTI-VITAMIN [Concomitant]
  13. CINNAMON. [Concomitant]
     Active Substance: CINNAMON
  14. CIPRO [Suspect]
     Active Substance: CIPROFLOXACIN HYDROCHLORIDE
     Indication: SINUSITIS
     Route: 048
  15. CLONIDINE. [Concomitant]
     Active Substance: CLONIDINE
  16. GENERIC PRILOSEC [Concomitant]
     Active Substance: OMEPRAZOLE MAGNESIUM
  17. VITAMIN B12 [Concomitant]
     Active Substance: CYANOCOBALAMIN

REACTIONS (3)
  - Tendon injury [None]
  - Tendon disorder [None]
  - Tendon rupture [None]
